FAERS Safety Report 25548812 (Version 2)
Quarter: 2025Q3

REPORT INFORMATION
  Report Type: Report from Study
  Country: IN (occurrence: IN)
  Receive Date: 20250714
  Receipt Date: 20250905
  Transmission Date: 20251020
  Serious: Yes (Other)
  Sender: PFIZER
  Company Number: IN-PFIZER INC-PV202500082906

PATIENT

DRUGS (1)
  1. INOTUZUMAB OZOGAMICIN [Suspect]
     Active Substance: INOTUZUMAB OZOGAMICIN
     Indication: B-cell type acute leukaemia

REACTIONS (1)
  - Drug-induced liver injury [Unknown]
